FAERS Safety Report 18818196 (Version 1)
Quarter: 2021Q1

REPORT INFORMATION
  Report Type: Spontaneous
  Country: CA (occurrence: CA)
  Receive Date: 20210201
  Receipt Date: 20210201
  Transmission Date: 20210419
  Serious: Yes (Other)
  Sender: FDA-Public Use
  Company Number: NVSC2021CA017721

PATIENT
  Sex: Male

DRUGS (1)
  1. DEXAMETHASONE. [Suspect]
     Active Substance: DEXAMETHASONE
     Indication: PULMONARY INTERSTITIAL EMPHYSEMA SYNDROME
     Dosage: 0.15 MG/KG, QD
     Route: 065

REACTIONS (2)
  - Product use in unapproved indication [Unknown]
  - Diabetes insipidus [Recovered/Resolved]
